FAERS Safety Report 8803234 (Version 2)
Quarter: 2012Q4

REPORT INFORMATION
  Report Type: 
  Country: US (occurrence: US)
  Receive Date: 20120924
  Receipt Date: 20121003
  Transmission Date: 20130627
  Serious: Yes (Other)
  Sender: FDA-Public Use
  Company Number: US-JNJFOC-20120905758

PATIENT
  Sex: Female
  Weight: 68.04 kg

DRUGS (4)
  1. REMICADE [Suspect]
     Indication: CROHN^S DISEASE
     Route: 042
     Dates: start: 201205
  2. REMICADE [Suspect]
     Indication: CROHN^S DISEASE
     Route: 042
     Dates: start: 1997
  3. LISINOPRIL [Concomitant]
     Indication: HYPERTENSION
     Route: 065
  4. AMBIEN [Concomitant]
     Indication: SLEEP DISORDER THERAPY
     Route: 065

REACTIONS (6)
  - Craniocerebral injury [Unknown]
  - Road traffic accident [Recovered/Resolved]
  - Depression [Unknown]
  - Crohn^s disease [Unknown]
  - Abdominal pain upper [Recovered/Resolved]
  - Blood potassium decreased [Unknown]
